FAERS Safety Report 7150707-0 (Version None)
Quarter: 2010Q4

REPORT INFORMATION
  Report Type: 
  Country: None (occurrence: None)
  Receive Date: 20101210
  Receipt Date: 20101130
  Transmission Date: 20110411
  Serious: Yes (Other)
  Sender: FDA-Public Use
  Company Number: LB-JNJFOC-20101201047

PATIENT
  Age: 40 Year
  Sex: Female

DRUGS (6)
  1. REMICADE [Suspect]
     Indication: PRODUCT USED FOR UNKNOWN INDICATION
     Route: 042
  2. HUMIRA [Suspect]
     Indication: CROHN'S DISEASE
     Route: 058
  3. HUMIRA [Suspect]
     Indication: ANKYLOSING SPONDYLITIS
     Route: 058
  4. MOBIC [Concomitant]
  5. VENLAFAXINE [Concomitant]
  6. MESALAZINE [Concomitant]

REACTIONS (1)
  - MYELODYSPLASTIC SYNDROME [None]
